FAERS Safety Report 6089723-9 (Version None)
Quarter: 2009Q1

REPORT INFORMATION
  Report Type: 
  Country: None (occurrence: None)
  Receive Date: 20090211
  Receipt Date: 20090211
  Transmission Date: 20090719
  Serious: Yes (Hospitalization, Other)
  Sender: FDA-Public Use
  Company Number: None

PATIENT
  Age: 46 Year
  Sex: Female

DRUGS (4)
  1. EPIRUBICIN [Suspect]
     Indication: BREAST CANCER
     Dosage: 90 MG/M**2 Q3W IV
     Route: 042
     Dates: start: 20080626, end: 20080626
  2. CYCLOPHOSPHAMIDE [Suspect]
     Indication: BREAST CANCER
     Dosage: 600 MG/M**2 CYC IV
     Route: 042
     Dates: start: 20080626, end: 20080626
  3. AUGMENTIN [Concomitant]
  4. OFLOCKET [Concomitant]

REACTIONS (3)
  - HYPOTENSION [None]
  - TOXIC EPIDERMAL NECROLYSIS [None]
  - URINARY TRACT INFECTION [None]
